FAERS Safety Report 9445433 (Version 1)
Quarter: 2013Q3

REPORT INFORMATION
  Report Type: Spontaneous
  Country: FR (occurrence: FR)
  Receive Date: 20130807
  Receipt Date: 20130807
  Transmission Date: 20140515
  Serious: Yes (Hospitalization)
  Sender: FDA-Public Use
  Company Number: FR-WATSON-2013-13871

PATIENT
  Age: 79 Year
  Sex: Male

DRUGS (4)
  1. MIRTAZAPINE (UNKNOWN) [Suspect]
     Indication: MAJOR DEPRESSION
     Dosage: 30 MG, DAILY
     Route: 048
     Dates: start: 201303
  2. LAMOTRIGINE (UNKNOWN) [Suspect]
     Indication: BIPOLAR DISORDER
     Dosage: 250 MG, DAILY
     Route: 048
     Dates: start: 20110803, end: 20130615
  3. RISPERIDONE (UNKNOWN) [Suspect]
     Indication: BIPOLAR I DISORDER
     Dosage: 2 MG, DAILY
     Route: 048
  4. OXAZEPAM (UNKNOWN) [Suspect]
     Indication: ANXIETY DISORDER
     Dosage: 30 MG, DAILY
     Route: 048

REACTIONS (3)
  - Depression [Recovered/Resolved]
  - Suicide attempt [Recovered/Resolved]
  - Drug ineffective [Recovered/Resolved]
